FAERS Safety Report 5710550-3 (Version None)
Quarter: 2008Q2

REPORT INFORMATION
  Report Type: 
  Country: None (occurrence: None)
  Receive Date: 20080415
  Receipt Date: 20080408
  Transmission Date: 20081010
  Serious: Yes (Hospitalization)
  Sender: FDA-Public Use
  Company Number: DSA_31621_2008

PATIENT
  Sex: Male
  Weight: 78.0187 kg

DRUGS (7)
  1. VASOTEC [Suspect]
     Indication: HYPERTENSION
     Dosage: (10 MG BID ORAL), (DF ORAL), (10 MG QD ORAL)
     Route: 048
     Dates: start: 20070801, end: 20080214
  2. VASOTEC [Suspect]
     Indication: HYPERTENSION
     Dosage: (10 MG BID ORAL), (DF ORAL), (10 MG QD ORAL)
     Route: 048
     Dates: start: 20071001
  3. VASOTEC [Suspect]
     Indication: HYPERTENSION
     Dosage: (10 MG BID ORAL), (DF ORAL), (10 MG QD ORAL)
     Route: 048
     Dates: start: 20080215
  4. VASOTEC [Suspect]
  5. VASOTEC [Suspect]
  6. VASOTEC [Suspect]
     Indication: HYPERTENSION
     Dosage: (10 MG BID ORAL)
     Route: 048
     Dates: start: 19920101, end: 20070801
  7. ASPIRIN [Concomitant]

REACTIONS (7)
  - ARRHYTHMIA [None]
  - BLOOD PRESSURE INCREASED [None]
  - BRADYCARDIA [None]
  - EXTRASYSTOLES [None]
  - HEART RATE IRREGULAR [None]
  - PERIPHERAL COLDNESS [None]
  - THERAPEUTIC RESPONSE UNEXPECTED WITH DRUG SUBSTITUTION [None]
